FAERS Safety Report 4871064-6 (Version None)
Quarter: 2005Q4

REPORT INFORMATION
  Report Type: 
  Country: None (occurrence: None)
  Receive Date: 20051229
  Receipt Date: 20051221
  Transmission Date: 20060501
  Serious: Yes (Other)
  Sender: FDA-Public Use
  Company Number: 200510686BYL

PATIENT
  Age: 30 Year
  Sex: Female

DRUGS (3)
  1. ADALAT [Suspect]
     Dosage: ORAL
     Route: 048
  2. BLOPRESS [Concomitant]
  3. NORVASC [Concomitant]

REACTIONS (1)
  - CEREBRAL INFARCTION [None]
